FAERS Safety Report 23662834 (Version 1)
Quarter: 2024Q1

REPORT INFORMATION
  Report Type: Spontaneous
  Country: IT (occurrence: IT)
  Receive Date: 20240322
  Receipt Date: 20240322
  Transmission Date: 20240409
  Serious: Yes (Other)
  Sender: FDA-Public Use
  Company Number: IT-SUN PHARMACEUTICAL INDUSTRIES LTD-2024RR-438171

PATIENT
  Sex: Male

DRUGS (12)
  1. OLANZAPINE [Suspect]
     Active Substance: OLANZAPINE
     Indication: Schizophrenia
     Dosage: 20 MILLIGRAM, DAILY
     Route: 065
     Dates: start: 2002
  2. ALPRAZOLAM [Suspect]
     Active Substance: ALPRAZOLAM
     Indication: Schizophrenia
     Dosage: UNK
     Route: 065
     Dates: start: 1990
  3. CITALOPRAM [Suspect]
     Active Substance: CITALOPRAM\CITALOPRAM HYDROBROMIDE
     Indication: Schizophrenia
     Dosage: 10 MILLIGRAM, DAILY
     Route: 065
     Dates: start: 2002
  4. CITALOPRAM [Suspect]
     Active Substance: CITALOPRAM\CITALOPRAM HYDROBROMIDE
     Route: 065
     Dates: start: 201811
  5. HALOPERIDOL [Suspect]
     Active Substance: HALOPERIDOL
     Indication: Schizophrenia
     Dosage: 16 GTT DROPS, DAILY
     Route: 065
     Dates: start: 201811
  6. HALOPERIDOL [Suspect]
     Active Substance: HALOPERIDOL
     Route: 065
     Dates: start: 1990, end: 2002
  7. CLOZAPINE [Suspect]
     Active Substance: CLOZAPINE
     Indication: Schizophrenia
     Dosage: 225 MILLIGRAM, DAILY
     Route: 065
     Dates: start: 201811
  8. CLOZAPINE [Suspect]
     Active Substance: CLOZAPINE
     Route: 065
     Dates: start: 2004
  9. RIVOTRIL [Suspect]
     Active Substance: CLONAZEPAM
     Indication: Schizophrenia
     Dosage: 12 GTT DROPS, DAILY
     Route: 065
     Dates: start: 201811
  10. BROTIZOLAM [Suspect]
     Active Substance: BROTIZOLAM
     Indication: Schizophrenia
     Dosage: UNK
     Route: 065
     Dates: start: 1990
  11. BIPERIDEN [Suspect]
     Active Substance: BIPERIDEN
     Indication: Schizophrenia
     Dosage: 4 MILLIGRAM, DAILY
     Route: 065
     Dates: start: 201811
  12. LURASIDONE [Concomitant]
     Active Substance: LURASIDONE
     Indication: Product used for unknown indication
     Dosage: UNK
     Route: 065

REACTIONS (3)
  - Psychomotor retardation [Unknown]
  - Sedation [Unknown]
  - Weight increased [Unknown]

NARRATIVE: CASE EVENT DATE: 20180101
